FAERS Safety Report 7176999-X (Version None)
Quarter: 2010Q4

REPORT INFORMATION
  Report Type: 
  Country: None (occurrence: None)
  Receive Date: 20101220
  Receipt Date: 20100527
  Transmission Date: 20110411
  Serious: No
  Sender: FDA-Public Use
  Company Number: US-ABBOTT-10P-163-0648726-00

PATIENT
  Sex: Male

DRUGS (1)
  1. ADVICOR [Suspect]
     Indication: PRODUCT USED FOR UNKNOWN INDICATION
     Dosage: 500/20 MILLIGRAMS
     Dates: start: 20080101

REACTIONS (2)
  - PARAESTHESIA [None]
  - PRURITUS [None]
